FAERS Safety Report 5052508-6 (Version None)
Quarter: 2006Q3

REPORT INFORMATION
  Report Type: 
  Country: None (occurrence: None)
  Receive Date: 20060712
  Receipt Date: 20060712
  Transmission Date: 20061208
  Serious: Yes (Death)
  Sender: FDA-Public Use
  Company Number: None

PATIENT
  Age: 37 Year
  Sex: Female
  Weight: 55 kg

DRUGS (1)
  1. REMODULIN [Suspect]
     Indication: PULMONARY HYPERTENSION
     Dosage: 16 NGR PER 48 HOURS 48 HOURS INTRAVESICA
     Route: 043
     Dates: start: 20060528, end: 20060622

REACTIONS (7)
  - ABASIA [None]
  - CARDIAC TAMPONADE [None]
  - GASTRIC DISORDER [None]
  - GENERAL PHYSICAL HEALTH DETERIORATION [None]
  - INSOMNIA [None]
  - PLEURAL EFFUSION [None]
  - SENSATION OF PRESSURE [None]
